FAERS Safety Report 6072115-6 (Version None)
Quarter: 2009Q1

REPORT INFORMATION
  Report Type: 
  Country: None (occurrence: None)
  Receive Date: 20090205
  Receipt Date: 20090205
  Transmission Date: 20090719
  Serious: Yes (Other)
  Sender: FDA-Public Use
  Company Number: None

PATIENT
  Sex: Female
  Weight: 57.1532 kg

DRUGS (1)
  1. ERYTHROMYCIN [Suspect]
     Indication: LOWER RESPIRATORY TRACT INFECTION
     Dosage: TABLET FOUR HOURLY PO
     Route: 048
     Dates: start: 20090101, end: 20090107

REACTIONS (6)
  - AGEUSIA [None]
  - ANOREXIA [None]
  - ANOSMIA [None]
  - DIARRHOEA [None]
  - HEART RATE IRREGULAR [None]
  - NAUSEA [None]
